FAERS Safety Report 7062120-5 (Version None)
Quarter: 2010Q4

REPORT INFORMATION
  Report Type: 
  Country: None (occurrence: None)
  Receive Date: 20101026
  Receipt Date: 20101014
  Transmission Date: 20110411
  Serious: Yes (Other)
  Sender: FDA-Public Use
  Company Number: PHHY2010JP64627

PATIENT
  Sex: Male

DRUGS (3)
  1. NEORAL [Suspect]
     Indication: PSORIASIS
     Dosage: 50 MG, TWICE DAILY (MORNING AND EVENING) POSTPRANDIALLY
     Route: 048
  2. NEORAL [Suspect]
     Dosage: UNK
     Route: 048
  3. AMARYL [Concomitant]
     Indication: DIABETES MELLITUS
     Route: 048

REACTIONS (5)
  - ASPIRATION JOINT [None]
  - JOINT EFFUSION [None]
  - MYALGIA [None]
  - PAIN IN EXTREMITY [None]
  - PSORIASIS [None]
